FAERS Safety Report 6612579-X (Version None)
Quarter: 2010Q1

REPORT INFORMATION
  Report Type: 
  Country: None (occurrence: None)
  Receive Date: 20100303
  Receipt Date: 20100223
  Transmission Date: 20100710
  Serious: Yes (Hospitalization, Disabling, Other)
  Sender: FDA-Public Use
  Company Number: GB-ABBOTT-10P-167-0622030-00

PATIENT
  Age: 38 Year
  Sex: Male

DRUGS (4)
  1. HUMIRA [Suspect]
     Indication: ANKYLOSING SPONDYLITIS
     Route: 058
     Dates: start: 20090901, end: 20100120
  2. CITALOPRAM [Concomitant]
     Indication: DEPRESSION
     Route: 048
     Dates: end: 20091001
  3. CO-DYDRAMOL [Concomitant]
     Indication: ANALGESIC THERAPY
     Dosage: 1-2 TABLETS
     Route: 048
     Dates: end: 20060801
  4. DURAGESIC-100 [Concomitant]
     Indication: ANALGESIC THERAPY
     Dosage: OVER 72 HOURS
     Dates: end: 20100216

REACTIONS (6)
  - CHEST PAIN [None]
  - DEEP VEIN THROMBOSIS [None]
  - DYSPNOEA [None]
  - PAIN IN EXTREMITY [None]
  - PHLEBITIS [None]
  - VARICOSE VEIN [None]
